FAERS Safety Report 6416374-6 (Version None)
Quarter: 2009Q4

REPORT INFORMATION
  Report Type: 
  Country: None (occurrence: None)
  Receive Date: 20091027
  Receipt Date: 20091015
  Transmission Date: 20100525
  Serious: Yes (Life-Threatening, Hospitalization, Disabling)
  Sender: FDA-Public Use
  Company Number: US-PFIZER INC-2008035534

PATIENT
  Age: 77 Year
  Sex: Male

DRUGS (4)
  1. XALATAN [Suspect]
     Route: 047
  2. DILTIAZEM [Suspect]
  3. PROPRANOLOL [Suspect]
  4. TIMOLOL [Suspect]

REACTIONS (2)
  - ATRIOVENTRICULAR BLOCK COMPLETE [None]
  - HYPERKALAEMIA [None]
